FAERS Safety Report 24443437 (Version 1)
Quarter: 2024Q4

REPORT INFORMATION
  Report Type: Spontaneous
  Country: US (occurrence: US)
  Receive Date: 20241016
  Receipt Date: 20241016
  Transmission Date: 20250115
  Serious: Yes (Hospitalization, Other)
  Sender: HIKMA
  Company Number: US-HIKMA PHARMACEUTICALS-US-H14001-24-09540

PATIENT
  Age: 62 Year
  Sex: Female
  Weight: 73.3 kg

DRUGS (7)
  1. BORTEZOMIB [Suspect]
     Active Substance: BORTEZOMIB
     Indication: Neoplasm progression
     Dosage: 1.7 MILLIGRAM, QD
     Route: 058
     Dates: start: 20220624, end: 20220625
  2. CARFILZOMIB [Suspect]
     Active Substance: CARFILZOMIB
     Indication: Plasma cell myeloma
     Dosage: 120 MILLIGRAM, WEEKLY
     Route: 042
     Dates: start: 20220608, end: 20220621
  3. CISPLATIN [Suspect]
     Active Substance: CISPLATIN
     Indication: Neoplasm progression
     Dosage: 17 MILLIGRAM, QD
     Route: 042
     Dates: start: 20220624, end: 20220627
  4. CYCLOPHOSPHAMIDE [Suspect]
     Active Substance: CYCLOPHOSPHAMIDE
     Indication: Neoplasm progression
     Dosage: 700 MILLIGRAM, QD
     Route: 042
     Dates: start: 20220624, end: 20220627
  5. DEXAMETHASONE [Suspect]
     Active Substance: DEXAMETHASONE
     Indication: Plasma cell myeloma
     Dosage: 40 MILLIGRAM, WEEKLY
     Route: 042
     Dates: start: 20220609, end: 20220621
  6. DEXAMETHASONE [Suspect]
     Active Substance: DEXAMETHASONE
     Dosage: 40 MILLIGRAM, QD
     Route: 042
     Dates: start: 20220624, end: 20220627
  7. ETOPOSIDE [Suspect]
     Active Substance: ETOPOSIDE
     Indication: Neoplasm progression
     Dosage: 70 MILLIGRAM, QD
     Route: 042
     Dates: start: 20220624, end: 20220627

REACTIONS (14)
  - Anaemia [Recovered/Resolved]
  - Platelet count decreased [Recovered/Resolved]
  - Asthenia [Unknown]
  - Dizziness [Unknown]
  - Dyspnoea [Unknown]
  - Faeces discoloured [Unknown]
  - Neutropenia [Unknown]
  - Electrolyte imbalance [Unknown]
  - Sinus tachycardia [Unknown]
  - Electrocardiogram ST segment elevation [Unknown]
  - COVID-19 [Unknown]
  - Melaena [Unknown]
  - Pyrexia [Unknown]
  - Febrile neutropenia [Unknown]

NARRATIVE: CASE EVENT DATE: 20220705
